FAERS Safety Report 5593295-2 (Version None)
Quarter: 2008Q1

REPORT INFORMATION
  Report Type: 
  Country: None (occurrence: None)
  Receive Date: 20080116
  Receipt Date: 20080114
  Transmission Date: 20080703
  Serious: Yes (Other)
  Sender: FDA-Public Use
  Company Number: A0703017A

PATIENT
  Age: 67 Year
  Sex: Male

DRUGS (5)
  1. IMITREX [Suspect]
     Indication: MIGRAINE
     Dosage: 50MG AS REQUIRED
     Route: 048
     Dates: start: 19920101
  2. CELEBREX [Concomitant]
  3. DIAZEPAM [Concomitant]
  4. WELLBUTRIN [Concomitant]
  5. ASPIRIN [Concomitant]

REACTIONS (3)
  - EYE PRURITUS [None]
  - FACIAL PALSY [None]
  - LACRIMATION INCREASED [None]
